FAERS Safety Report 12833839 (Version 2)
Quarter: 2016Q4

REPORT INFORMATION
  Report Type: Spontaneous
  Country: US (occurrence: US)
  Receive Date: 20161010
  Receipt Date: 20161207
  Transmission Date: 20170207
  Serious: Yes (Other)
  Sender: FDA-Public Use
  Company Number: US-TEVA-699918USA

PATIENT
  Age: 68 Year
  Sex: Female

DRUGS (19)
  1. FLUNISOLIDE. [Concomitant]
     Active Substance: FLUNISOLIDE
  2. PRAVASTATIN. [Concomitant]
     Active Substance: PRAVASTATIN
  3. PROAIR HFA [Concomitant]
     Active Substance: ALBUTEROL SULFATE
  4. BACLOFEN. [Concomitant]
     Active Substance: BACLOFEN
  5. POTASSIUM CHLORIDE. [Concomitant]
     Active Substance: POTASSIUM CHLORIDE
  6. BREO ELLIPTA [Concomitant]
     Active Substance: FLUTICASONE FUROATE\VILANTEROL TRIFENATATE
     Route: 055
  7. COPAXONE [Suspect]
     Active Substance: GLATIRAMER ACETATE
     Indication: MULTIPLE SCLEROSIS
     Route: 058
  8. BUPROPION. [Concomitant]
     Active Substance: BUPROPION
  9. ESCITALOPRAM [Concomitant]
     Active Substance: ESCITALOPRAM OXALATE
  10. LEVOTHYROXINE. [Concomitant]
     Active Substance: LEVOTHYROXINE
  11. TOLNAFTATE. [Concomitant]
     Active Substance: TOLNAFTATE
  12. MELOXICAM. [Concomitant]
     Active Substance: MELOXICAM
  13. LACTULOSE. [Concomitant]
     Active Substance: LACTULOSE
  14. METHYLPRED [Concomitant]
     Active Substance: METHYLPREDNISOLONE
  15. MORPHINE [Concomitant]
     Active Substance: MORPHINE
  16. CLONAZEPAM. [Concomitant]
     Active Substance: CLONAZEPAM
  17. FUROSEMIDE. [Concomitant]
     Active Substance: FUROSEMIDE
  18. HYDROCODONE BITARTRATE AND ACETAMINOPHEN [Concomitant]
     Active Substance: ACETAMINOPHEN\HYDROCODONE BITARTRATE
  19. METFORMIN [Concomitant]
     Active Substance: METFORMIN HYDROCHLORIDE

REACTIONS (6)
  - Tremor [Unknown]
  - Head injury [Unknown]
  - Multiple sclerosis relapse [Unknown]
  - Cognitive disorder [Unknown]
  - Fall [Unknown]
  - Vision blurred [Unknown]

NARRATIVE: CASE EVENT DATE: 201607
